FAERS Safety Report 9010380 (Version 2)
Quarter: 2013Q2

REPORT INFORMATION
  Report Type: Spontaneous
  Country: US (occurrence: US)
  Receive Date: 20130111
  Receipt Date: 20130412
  Transmission Date: 20140414
  Serious: Yes (Death, Other)
  Sender: FDA-Public Use
  Company Number: US-009507513-1301USA001713

PATIENT
  Age: 24 Year
  Sex: 0

DRUGS (2)
  1. SINGULAIR [Suspect]
     Indication: COMPLETED SUICIDE
  2. AMITRIPTYLINE HYDROCHLORIDE (+) PERPHENAZINE [Suspect]
     Indication: COMPLETED SUICIDE

REACTIONS (3)
  - Completed suicide [Fatal]
  - Cardio-respiratory arrest [Fatal]
  - Death [Fatal]
